FAERS Safety Report 7712479-8 (Version None)
Quarter: 2011Q3

REPORT INFORMATION
  Report Type: 
  Country: None (occurrence: None)
  Receive Date: 20110826
  Receipt Date: 20110826
  Transmission Date: 20111222
  Serious: Yes (Hospitalization)
  Sender: FDA-Public Use
  Company Number: None

PATIENT
  Age: 72 Year
  Sex: Male
  Weight: 100 kg

DRUGS (15)
  1. ASPIRIN [Concomitant]
     Route: 048
  2. METOLAZONE [Concomitant]
     Route: 048
  3. SIMAVASTATIN [Concomitant]
     Route: 048
  4. AMLODIPINE [Concomitant]
     Route: 048
  5. FEBUXOSTAT [Concomitant]
     Route: 048
  6. INSULIN GLARGINE [Concomitant]
     Route: 058
  7. INSULIN ASPART [Concomitant]
     Route: 058
  8. SOTALOL HCL [Concomitant]
     Route: 048
  9. FUROSEMIDE [Concomitant]
     Route: 048
  10. VALSARTAN [Concomitant]
     Route: 048
  11. HYDRALAZINE HCL [Concomitant]
     Route: 048
  12. WARFARIN SODIUM [Suspect]
     Indication: ATRIAL FIBRILLATION
     Dosage: 5 MG
     Route: 048
  13. WARFARIN SODIUM [Suspect]
     Indication: ATRIAL FLUTTER
     Dosage: 5 MG
     Route: 048
  14. VITAMIN D 50,000 UNITS [Concomitant]
     Route: 048
  15. MULTI-VITAMIN [Concomitant]
     Route: 048

REACTIONS (7)
  - ANAEMIA [None]
  - INTERNATIONAL NORMALISED RATIO INCREASED [None]
  - GASTRITIS [None]
  - ASTHENIA [None]
  - FAECES DISCOLOURED [None]
  - DIZZINESS [None]
  - HYPOTENSION [None]
